FAERS Safety Report 13831834 (Version 1)
Quarter: 2017Q3

REPORT INFORMATION
  Report Type: Spontaneous
  Country: US (occurrence: US)
  Receive Date: 20170803
  Receipt Date: 20170803
  Transmission Date: 20171127
  Serious: No
  Sender: FDA-Public Use
  Company Number: US-ROCHE-682461

PATIENT
  Age: 62 Year
  Sex: Female
  Weight: 60.3 kg

DRUGS (2)
  1. BONIVA [Suspect]
     Active Substance: IBANDRONATE SODIUM
     Indication: OSTEOPOROSIS
     Route: 048
  2. MAXZIDE [Concomitant]
     Active Substance: HYDROCHLOROTHIAZIDE\TRIAMTERENE
     Dosage: DRUG GIVEN AS MAXZIDE 37.5/25 MG
     Route: 065

REACTIONS (10)
  - Hypersomnia [Recovering/Resolving]
  - Chest discomfort [Unknown]
  - Blood pressure increased [Not Recovered/Not Resolved]
  - Dyspnoea [Unknown]
  - Constipation [Not Recovered/Not Resolved]
  - Palpitations [Unknown]
  - Gastrooesophageal reflux disease [Unknown]
  - Asthenia [Recovering/Resolving]
  - Influenza [Recovering/Resolving]
  - Insomnia [Not Recovered/Not Resolved]
